FAERS Safety Report 15201454 (Version 1)
Quarter: 2018Q3

REPORT INFORMATION
  Report Type: Spontaneous
  Country: FR (occurrence: FR)
  Receive Date: 20180726
  Receipt Date: 20180726
  Transmission Date: 20181010
  Serious: Yes (Hospitalization)
  Sender: FDA-Public Use
  Company Number: FR-ACCORD-069953

PATIENT
  Age: 67 Year
  Sex: Female
  Weight: 53 kg

DRUGS (6)
  1. POLARAMINE [Concomitant]
     Active Substance: DEXCHLORPHENIRAMINE MALEATE
     Indication: ADJUVANT THERAPY
     Route: 042
     Dates: start: 20171002, end: 20171002
  2. AZANTAC [Concomitant]
     Active Substance: RANITIDINE HYDROCHLORIDE
     Indication: ADJUVANT THERAPY
     Route: 042
     Dates: start: 20171002, end: 20171002
  3. ONDANSETRON ACCORD [Concomitant]
     Active Substance: ONDANSETRON
     Indication: ADJUVANT THERAPY
     Route: 042
     Dates: start: 20171002, end: 20171002
  4. CARBOPLATINE ACCORD [Suspect]
     Active Substance: CARBOPLATIN
     Indication: OVARIAN EPITHELIAL CANCER
     Route: 041
     Dates: start: 20171002, end: 20171002
  5. METHYLPREDNISOLONE MERCK [Concomitant]
     Active Substance: METHYLPREDNISOLONE
     Indication: ADJUVANT THERAPY
     Route: 042
     Dates: start: 20171002, end: 20171002
  6. PACLITAXEL EBEWE [Suspect]
     Active Substance: PACLITAXEL
     Indication: OVARIAN EPITHELIAL CANCER
     Route: 041
     Dates: start: 20171002, end: 20171002

REACTIONS (4)
  - Erythema [Recovered/Resolved]
  - Hot flush [Recovered/Resolved]
  - Skin reaction [Recovered/Resolved]
  - Skin warm [Recovered/Resolved]

NARRATIVE: CASE EVENT DATE: 20171002
